FAERS Safety Report 6046212-5 (Version None)
Quarter: 2009Q1

REPORT INFORMATION
  Report Type: 
  Country: None (occurrence: None)
  Receive Date: 20090122
  Receipt Date: 20090109
  Transmission Date: 20090719
  Serious: Yes (Hospitalization)
  Sender: FDA-Public Use
  Company Number: US-PFIZER INC-2009154805

PATIENT
  Age: 56 Year
  Sex: Female

DRUGS (1)
  1. GEODON [Suspect]

REACTIONS (2)
  - ANAPHYLACTIC REACTION [None]
  - TONGUE OEDEMA [None]
